FAERS Safety Report 21041886 (Version 2)
Quarter: 2022Q3

REPORT INFORMATION
  Report Type: Report from Study
  Country: CA (occurrence: CA)
  Receive Date: 20220705
  Receipt Date: 20220710
  Transmission Date: 20221026
  Serious: Yes (Hospitalization)
  Sender: FDA-Public Use
  Company Number: CA-BIOGEN-2022BI01136427

PATIENT
  Sex: Female

DRUGS (1)
  1. TYSABRI [Suspect]
     Active Substance: NATALIZUMAB
     Indication: Multiple sclerosis
     Route: 050
     Dates: start: 20210712

REACTIONS (4)
  - Gait inability [Unknown]
  - Hypoaesthesia [Unknown]
  - Fall [Recovered/Resolved]
  - SARS-CoV-2 test positive [Not Recovered/Not Resolved]
